FAERS Safety Report 21985272 (Version 5)
Quarter: 2023Q4

REPORT INFORMATION
  Report Type: Report from Study
  Country: EG (occurrence: EG)
  Receive Date: 20230213
  Receipt Date: 20231011
  Transmission Date: 20240109
  Serious: Yes (Other)
  Sender: FDA-Public Use
  Company Number: EG-002147023-NVSC2023EG030961

PATIENT
  Sex: Female

DRUGS (11)
  1. KISQALI [Suspect]
     Active Substance: RIBOCICLIB
     Indication: Breast cancer
     Dosage: 200 MG
     Route: 065
  2. KISQALI [Suspect]
     Active Substance: RIBOCICLIB
     Dosage: 300 MG (2 TABLETS 150MG)
     Route: 065
  3. KISQALI [Suspect]
     Active Substance: RIBOCICLIB
     Dosage: 1 TABLET PER DAY BUT NOT SURE
     Route: 065
     Dates: start: 202104
  4. PIQRAY [Suspect]
     Active Substance: ALPELISIB
     Indication: Breast cancer metastatic
     Dosage: 200 MG (2 TABLET) (STOP DATE- JUNE OR JULY 2023)
     Route: 065
     Dates: start: 2022
  5. PIQRAY [Suspect]
     Active Substance: ALPELISIB
     Dosage: 150 MG (2 TABLET)
     Route: 065
  6. PIQRAY [Suspect]
     Active Substance: ALPELISIB
     Dosage: 300 MG (150+150 MG)
     Route: 048
     Dates: start: 2022
  7. PIQRAY [Suspect]
     Active Substance: ALPELISIB
     Dosage: 200 MG
     Route: 048
  8. PIQRAY [Suspect]
     Active Substance: ALPELISIB
     Dosage: 250 MG, QD (ONCE DAILY)
     Route: 048
  9. FASLODEX [Concomitant]
     Active Substance: FULVESTRANT
     Indication: Product used for unknown indication
     Dosage: UNK
     Route: 065
  10. CALMAG [Concomitant]
     Indication: Product used for unknown indication
     Dosage: UNK
     Route: 065
  11. CHOLESTEROL [Concomitant]
     Active Substance: CHOLESTEROL
     Indication: Product used for unknown indication
     Dosage: UNK
     Route: 065

REACTIONS (11)
  - Diabetes mellitus [Recovering/Resolving]
  - Coma [Recovering/Resolving]
  - Spinal cord neoplasm [Unknown]
  - Hepatic cirrhosis [Unknown]
  - Breast cancer metastatic [Unknown]
  - Malignant neoplasm progression [Unknown]
  - Intraductal proliferative breast lesion [Unknown]
  - Ill-defined disorder [Not Recovered/Not Resolved]
  - Osteoporosis [Not Recovered/Not Resolved]
  - Product availability issue [Unknown]
  - Drug ineffective [Unknown]

NARRATIVE: CASE EVENT DATE: 20220101
